FAERS Safety Report 9723208 (Version 1)
Quarter: 2013Q4

REPORT INFORMATION
  Report Type: Spontaneous
  Country: US (occurrence: US)
  Receive Date: 20131202
  Receipt Date: 20131202
  Transmission Date: 20140711
  Serious: Yes (Hospitalization)
  Sender: FDA-Public Use
  Company Number: US-NOVOPROD-393573

PATIENT
  Age: 74 Year
  Sex: Female
  Weight: 115 kg

DRUGS (1)
  1. LEVEMIR FLEXPEN [Suspect]
     Indication: TYPE 2 DIABETES MELLITUS
     Dosage: 6 UNITS QD IN THE MORNING AND 60 UNITS QD HS
     Route: 058

REACTIONS (1)
  - Injection site necrosis [Unknown]
